FAERS Safety Report 5925832-X (Version None)
Quarter: 2008Q4

REPORT INFORMATION
  Report Type: 
  Country: None (occurrence: None)
  Receive Date: 20081021
  Receipt Date: 20081008
  Transmission Date: 20090506
  Serious: Yes (Hospitalization)
  Sender: FDA-Public Use
  Company Number: CA-AVENTIS-200819751GDDC

PATIENT
  Age: 63 Year
  Sex: Male

DRUGS (6)
  1. GLYBURIDE [Suspect]
     Route: 048
     Dates: start: 20051109, end: 20080920
  2. CODE UNBROKEN [Suspect]
     Dates: start: 20080130
  3. METFORMIN HYDROCHLORIDE [Concomitant]
     Route: 048
     Dates: start: 20051109
  4. ASPIRIN [Concomitant]
     Indication: CORONARY ARTERY DISEASE
     Route: 048
     Dates: start: 20051109
  5. METOPROLOL TARTRATE [Concomitant]
     Indication: ANGINA PECTORIS
     Route: 048
     Dates: start: 20001010
  6. COVERSYL                           /00790701/ [Concomitant]
     Indication: HYPERTENSION
     Route: 048
     Dates: start: 20031007

REACTIONS (2)
  - CONVULSION [None]
  - HYPOGLYCAEMIA [None]
